FAERS Safety Report 5818591-2 (Version None)
Quarter: 2008Q3

REPORT INFORMATION
  Report Type: 
  Country: None (occurrence: None)
  Receive Date: 20080722
  Receipt Date: 20080709
  Transmission Date: 20090109
  Serious: Yes (Hospitalization)
  Sender: FDA-Public Use
  Company Number: JP-ELI_LILLY_AND_COMPANY-JP200807003560

PATIENT
  Sex: Female

DRUGS (1)
  1. HUMATROPE [Suspect]
     Route: 058

REACTIONS (2)
  - FALL [None]
  - FRACTURE [None]
